FAERS Safety Report 7987481-1 (Version None)
Quarter: 2011Q4

REPORT INFORMATION
  Report Type: 
  Country: None (occurrence: None)
  Receive Date: 20111216
  Receipt Date: 20111211
  Transmission Date: 20120403
  Serious: Yes (Hospitalization, Other)
  Sender: FDA-Public Use
  Company Number: PHHY2011US108614

PATIENT
  Age: 71 Year
  Sex: Male

DRUGS (2)
  1. TOBRAMYCIN [Suspect]
  2. MEROPENEM [Suspect]

REACTIONS (8)
  - RESPIRATORY DISTRESS [None]
  - PYREXIA [None]
  - KLEBSIELLA INFECTION [None]
  - SEPSIS SYNDROME [None]
  - CHILLS [None]
  - FEBRILE NEUTROPENIA [None]
  - CAECITIS [None]
  - BACTERAEMIA [None]
